FAERS Safety Report 17480091 (Version 1)
Quarter: 2020Q1

REPORT INFORMATION
  Report Type: Spontaneous
  Country: US (occurrence: US)
  Receive Date: 20200228
  Receipt Date: 20200228
  Transmission Date: 20200409
  Serious: No
  Sender: FDA-Public Use
  Company Number: US-GALDERMA-US19053528

PATIENT
  Age: 65 Year
  Sex: Female

DRUGS (1)
  1. DIFFERIN GEL [Suspect]
     Active Substance: ADAPALENE
     Indication: SKIN WRINKLING
     Dosage: 0.1%
     Route: 061
     Dates: start: 20190818, end: 201908

REACTIONS (5)
  - Dry skin [Recovered/Resolved]
  - Acne [Not Recovered/Not Resolved]
  - Intentional product use issue [Recovered/Resolved]
  - Skin tightness [Recovered/Resolved]
  - Seborrhoea [Recovered/Resolved]

NARRATIVE: CASE EVENT DATE: 20190817
